FAERS Safety Report 5560222-3 (Version None)
Quarter: 2007Q4

REPORT INFORMATION
  Report Type: 
  Country: None (occurrence: None)
  Receive Date: 20071214
  Receipt Date: 20071030
  Transmission Date: 20080405
  Serious: No
  Sender: FDA-Public Use
  Company Number: US-ABBOTT-07P-163-0422796-00

PATIENT
  Sex: Female

DRUGS (4)
  1. HUMIRA [Suspect]
     Indication: ANKYLOSING SPONDYLITIS
     Route: 058
     Dates: start: 20071001
  2. HUMIRA [Suspect]
     Indication: ARTHRITIS REACTIVE
  3. METHOTREXATE [Suspect]
     Indication: ANKYLOSING SPONDYLITIS
     Route: 048
     Dates: start: 20070801, end: 20070811
  4. METHOTREXATE [Suspect]
     Route: 050
     Dates: end: 20071026

REACTIONS (3)
  - LIVER FUNCTION TEST ABNORMAL [None]
  - MALAISE [None]
  - VOMITING [None]
